FAERS Safety Report 19924461 (Version 2)
Quarter: 2021Q4

REPORT INFORMATION
  Report Type: Spontaneous
  Country: DE (occurrence: DE)
  Receive Date: 20211006
  Receipt Date: 20211018
  Transmission Date: 20220303
  Serious: Yes (Hospitalization, Other)
  Sender: FDA-Public Use
  Company Number: DE-BRISTOL-MYERS SQUIBB COMPANY-BMS-2021-079899

PATIENT
  Age: 78 Year
  Sex: Male

DRUGS (16)
  1. OPDIVO [Suspect]
     Active Substance: NIVOLUMAB
     Indication: Malignant melanoma
     Dosage: 480 MILLIGRAM, INFUSION
     Route: 065
     Dates: start: 20210211, end: 20210818
  2. ASPIRIN [Concomitant]
     Active Substance: ASPIRIN
     Indication: Heart valve replacement
     Dosage: 100 MILLIGRAM, 1-0-0-0, COMMENT: LIFELONG
     Route: 065
  3. ASPIRIN [Concomitant]
     Active Substance: ASPIRIN
     Indication: Coronary artery disease
  4. CLOPIDOGREL 1A PHARMA [Concomitant]
     Indication: Aortic valve replacement
     Dosage: 75 MILLIGRAM, 1-0-0-0, COMMENT:DUAL PLATELET INHIBITION AFTER STENT AND AORTIC VALVE REPLACEMENT UNT
     Route: 065
  5. CLOPIDOGREL 1A PHARMA [Concomitant]
     Indication: Platelet aggregation inhibition
  6. PANTOZOL [Concomitant]
     Active Substance: PANTOPRAZOLE SODIUM
     Indication: Gastritis
     Dosage: 40 MILLIGRAM, 1-0-0-0
     Route: 065
  7. PANTOZOL [Concomitant]
     Active Substance: PANTOPRAZOLE SODIUM
     Indication: Platelet aggregation inhibition
  8. VALSARTAN [Concomitant]
     Active Substance: VALSARTAN
     Indication: Ejection fraction
     Dosage: 80 MILLIGRAM, 1-0-0-0
     Route: 065
  9. VALSARTAN [Concomitant]
     Active Substance: VALSARTAN
     Indication: Cardiac failure
  10. BISOPROLOL [Concomitant]
     Active Substance: BISOPROLOL
     Indication: Cardiac failure
     Dosage: 2.5 MILLIGRAM.1-0-1-0, EVENING DOSE MODIFIABLE DEPENDING ON BLOOD PRESSURE VALUES
     Route: 065
  11. TORSEMIDE [Concomitant]
     Active Substance: TORSEMIDE
     Indication: Oedema
     Dosage: 10 MILLIGRAM, 2-1-0-0, COMMENT: ADJUST DOSE DEPENDING ON EDEMAS
     Route: 065
  12. JARDIANCE [Concomitant]
     Active Substance: EMPAGLIFLOZIN
     Indication: Diabetes mellitus
     Dosage: 10 MILLIGRAM, 1-0-0-0
     Route: 065
  13. JARDIANCE [Concomitant]
     Active Substance: EMPAGLIFLOZIN
     Indication: Cardiac failure
  14. TRULICITY [Concomitant]
     Active Substance: DULAGLUTIDE
     Indication: Diabetes mellitus
     Dosage: 1.5 MG/ 5 ML,SOLUTIONY, ONCE WEEKLY
     Route: 058
  15. ATORVASTATIN CALCIUM [Concomitant]
     Active Substance: ATORVASTATIN CALCIUM
     Indication: Coronary artery disease
     Dosage: 10 MILLIGRAM, 0-0-1-0, COMMENT:TARGET VALUE LDL (LOW DENSITY LIPOPROTEIN) BELOW 1.8 MMOL/ L DUE TO S
     Route: 065
  16. ATORVASTATIN CALCIUM [Concomitant]
     Active Substance: ATORVASTATIN CALCIUM
     Indication: Low density lipoprotein increased

REACTIONS (3)
  - Autoimmune anaemia [Recovering/Resolving]
  - Pancytopenia [Recovering/Resolving]
  - Normocytic anaemia [Unknown]

NARRATIVE: CASE EVENT DATE: 20210601
